FAERS Safety Report 10102927 (Version 2)
Quarter: 2014Q2

REPORT INFORMATION
  Report Type: Other
  Country: US (occurrence: US)
  Receive Date: 20140424
  Receipt Date: 20140609
  Transmission Date: 20141212
  Serious: Yes (Hospitalization, Other)
  Sender: FDA-Public Use
  Company Number: US-GSKPPD-2014GSK000174

PATIENT
  Age: 64 Year
  Sex: Male
  Weight: 101.7 kg

DRUGS (5)
  1. AVANDIA [Suspect]
     Indication: DIABETES MELLITUS
     Route: 048
     Dates: start: 20000927, end: 20010831
  2. TOPROL [Concomitant]
     Route: 048
  3. LISINOPRIL [Concomitant]
     Route: 048
  4. ASPIRIN [Concomitant]
     Route: 048
  5. NITROGLYCERIN [Concomitant]
     Route: 060

REACTIONS (1)
  - Myocardial infarction [Recovered/Resolved]
